FAERS Safety Report 6121767-0 (Version None)
Quarter: 2009Q1

REPORT INFORMATION
  Report Type: 
  Country: None (occurrence: None)
  Receive Date: 20090317
  Receipt Date: 20090309
  Transmission Date: 20090719
  Serious: Yes (Other)
  Sender: FDA-Public Use
  Company Number: DE-B.I. PHARMACEUTICALS,INC./RIDGEFIELD-2008-DE-05224DE

PATIENT
  Sex: Female
  Weight: 62 kg

DRUGS (8)
  1. MICARDIS [Suspect]
     Indication: HYPERTENSION
     Dosage: 40MG
     Route: 048
  2. EUTHYROX [Concomitant]
     Indication: THYROID DISORDER
     Dosage: 50MCG
  3. DECORTIN H 10 [Concomitant]
     Indication: SYSTEMIC LUPUS ERYTHEMATOSUS
     Dosage: 1ANZ
  4. INNOHEP 3500 INJECTION [Concomitant]
     Indication: MITRAL VALVE REPLACEMENT
     Dosage: 2ANZ
     Dates: end: 20090107
  5. VITAMINS FOLIO [Concomitant]
  6. VITAMINS COMPLEX [Concomitant]
  7. MAGNESIUM SULFATE [Concomitant]
  8. CALCIUM [Concomitant]

REACTIONS (3)
  - ANTEPARTUM HAEMORRHAGE [None]
  - PREMATURE LABOUR [None]
  - UMBILICAL CORD ABNORMALITY [None]
